FAERS Safety Report 6126037-2 (Version None)
Quarter: 2009Q1

REPORT INFORMATION
  Report Type: 
  Country: None (occurrence: None)
  Receive Date: 20090320
  Receipt Date: 20090313
  Transmission Date: 20090719
  Serious: Yes (Other)
  Sender: FDA-Public Use
  Company Number: DE-ROCHE-621554

PATIENT
  Sex: Female

DRUGS (1)
  1. ROCEPHIN [Suspect]
     Dosage: 5 INFUSIONS IN SEP-2006
     Route: 042
     Dates: start: 20060901, end: 20060901

REACTIONS (2)
  - MUSCULAR WEAKNESS [None]
  - PAIN [None]
